FAERS Safety Report 12768512 (Version 1)
Quarter: 2016Q3

REPORT INFORMATION
  Report Type: Spontaneous
  Country: US (occurrence: US)
  Receive Date: 20160921
  Receipt Date: 20160921
  Transmission Date: 20161109
  Serious: No
  Sender: FDA-Public Use
  Company Number: US-TEIKOKU PHARMA USA-TPU2016-00586

PATIENT
  Age: 59 Year
  Sex: Male
  Weight: 72.64 kg

DRUGS (1)
  1. LIDODERM [Suspect]
     Active Substance: LIDOCAINE
     Indication: NEUROPATHY PERIPHERAL
     Dosage: 2 PATCHES APPLIED TO UPPER BACK 12 HOURS ON AND 12 HOURS OFF
     Route: 061
     Dates: start: 201403

REACTIONS (2)
  - Expired product administered [Unknown]
  - Drug ineffective for unapproved indication [Not Recovered/Not Resolved]

NARRATIVE: CASE EVENT DATE: 201608
